FAERS Safety Report 4543979-X (Version None)
Quarter: 2004Q4

REPORT INFORMATION
  Report Type: 
  Country: None (occurrence: None)
  Receive Date: 20041223
  Receipt Date: 20040910
  Transmission Date: 20050328
  Serious: No
  Sender: FDA-Public Use
  Company Number: US-JNJFOC-20040903872

PATIENT
  Age: 33 Year
  Sex: Female
  Weight: 45.3597 kg

DRUGS (4)
  1. ORTHO EVRA [Suspect]
     Indication: CONTRACEPTION
     Dosage: 1 DOSE(S), 3 IN 4 WEEK, TRANSDERMAL
     Route: 062
  2. SYNTHROID [Concomitant]
  3. ALBUTEROL [Concomitant]
  4. ADVAIR (SERETIDE MITE) [Concomitant]

REACTIONS (1)
  - METRORRHAGIA [None]
